FAERS Safety Report 22293443 (Version 1)
Quarter: 2023Q2

REPORT INFORMATION
  Report Type: Spontaneous
  Country: None (occurrence: US)
  Receive Date: 20230508
  Receipt Date: 20230508
  Transmission Date: 20230721
  Serious: No
  Sender: FDA-Public Use
  Company Number: US-Mission Pharmacal Company-2141205

PATIENT
  Age: 66 Year
  Sex: Female

DRUGS (4)
  1. THIOLA EC [Suspect]
     Active Substance: TIOPRONIN
     Indication: Cystinuria
     Route: 048
     Dates: start: 20230419
  2. ALBUTEROL [Concomitant]
     Active Substance: ALBUTEROL
  3. VITAMINS [Concomitant]
     Active Substance: VITAMINS
  4. POTASSIUM CITRATE [Concomitant]
     Active Substance: POTASSIUM CITRATE
     Route: 048

REACTIONS (3)
  - Feeling jittery [Unknown]
  - Nervousness [Recovered/Resolved]
  - Rash [Unknown]
